FAERS Safety Report 17830899 (Version 1)
Quarter: 2020Q2

REPORT INFORMATION
  Report Type: Spontaneous
  Country: PT (occurrence: PT)
  Receive Date: 20200527
  Receipt Date: 20200527
  Transmission Date: 20200714
  Serious: Yes (Other)
  Sender: FDA-Public Use
  Company Number: PT-PFIZER INC-2020208743

PATIENT
  Age: 39 Year
  Sex: Female

DRUGS (1)
  1. SALAZOPIRINA EN [Suspect]
     Active Substance: SULFASALAZINE
     Indication: ANKYLOSING SPONDYLITIS
     Route: 048

REACTIONS (1)
  - Toxic skin eruption [Recovered/Resolved]
